FAERS Safety Report 19912462 (Version 2)
Quarter: 2021Q4

REPORT INFORMATION
  Report Type: Report from Study
  Country: FR (occurrence: FR)
  Receive Date: 20211004
  Receipt Date: 20211108
  Transmission Date: 20220303
  Serious: Yes (Death, Other)
  Sender: FDA-Public Use
  Company Number: FR-NOVARTISPH-NVSC2020FR336743

PATIENT
  Sex: Male
  Weight: 92 kg

DRUGS (9)
  1. TRAMETINIB [Suspect]
     Active Substance: TRAMETINIB
     Indication: BRAF gene mutation
     Dosage: 2 MG, QD
     Route: 048
     Dates: start: 20201024, end: 20210127
  2. TRAMETINIB [Suspect]
     Active Substance: TRAMETINIB
     Indication: Malignant melanoma
     Dosage: 1 MG
     Route: 048
     Dates: start: 20210128
  3. DABRAFENIB [Suspect]
     Active Substance: DABRAFENIB
     Indication: BRAF gene mutation
     Dosage: 300 MG
     Route: 048
     Dates: start: 20201024, end: 20210127
  4. DABRAFENIB [Suspect]
     Active Substance: DABRAFENIB
     Indication: Malignant melanoma
     Dosage: 150 MG, BID
     Route: 048
     Dates: start: 20201024, end: 20210127
  5. DABRAFENIB [Suspect]
     Active Substance: DABRAFENIB
     Dosage: 150 MG
     Route: 048
     Dates: start: 20210128
  6. PREDNISONE [Concomitant]
     Active Substance: PREDNISONE
     Indication: Malignant melanoma
     Dosage: 40 MG
     Route: 048
     Dates: start: 20201023, end: 20210127
  7. IPILIMUMAB [Concomitant]
     Active Substance: IPILIMUMAB
     Indication: Product used for unknown indication
     Dosage: UNK
     Route: 065
  8. PEMBROLIZUMAB [Concomitant]
     Active Substance: PEMBROLIZUMAB
     Indication: Product used for unknown indication
     Dosage: UNK
     Route: 065
  9. PREDNISONE [Concomitant]
     Active Substance: PREDNISONE
     Indication: Malignant melanoma
     Dosage: 40 MG, BID
     Route: 048
     Dates: start: 20201023, end: 20210127

REACTIONS (5)
  - Malignant melanoma [Fatal]
  - Malignant neoplasm progression [Fatal]
  - Neutropenia [Recovered/Resolved]
  - Hyperhidrosis [Recovered/Resolved]
  - Pyrexia [Recovered/Resolved]

NARRATIVE: CASE EVENT DATE: 20201107
